FAERS Safety Report 23215597 (Version 1)
Quarter: 2023Q4

REPORT INFORMATION
  Report Type: Spontaneous
  Country: US (occurrence: US)
  Receive Date: 20231122
  Receipt Date: 20231122
  Transmission Date: 20240110
  Serious: No
  Sender: FDA-Public Use
  Company Number: US-ALMIRALL, LLC-2023AQU000001

PATIENT

DRUGS (2)
  1. SEYSARA [Suspect]
     Active Substance: SARECYCLINE HYDROCHLORIDE
     Indication: Product used for unknown indication
     Dosage: UNK
     Route: 048
  2. DUPIXENT [Suspect]
     Active Substance: DUPILUMAB
     Indication: Product used for unknown indication
     Dosage: 300 MILLIGRAM
     Route: 058

REACTIONS (8)
  - Euphoric mood [Unknown]
  - Motor dysfunction [Unknown]
  - Dysarthria [Unknown]
  - Head discomfort [Unknown]
  - Eye irritation [Unknown]
  - Dyspepsia [Unknown]
  - Eye disorder [Unknown]
  - Photosensitivity reaction [Unknown]
